FAERS Safety Report 21410799 (Version 1)
Quarter: 2022Q4

REPORT INFORMATION
  Report Type: Spontaneous
  Country: US (occurrence: US)
  Receive Date: 20221005
  Receipt Date: 20221005
  Transmission Date: 20230113
  Serious: Yes (Other)
  Sender: FDA-Public Use
  Company Number: US-MYLANLABS-2022M1110810

PATIENT
  Age: 71 Year
  Sex: Male

DRUGS (8)
  1. CARBOPLATIN [Suspect]
     Active Substance: CARBOPLATIN
     Indication: Lung adenocarcinoma stage IV
     Dosage: UNK, 4 CYCLES
     Route: 065
     Dates: start: 202011, end: 202101
  2. PACLITAXEL [Suspect]
     Active Substance: PACLITAXEL
     Indication: Lung adenocarcinoma stage IV
     Dosage: UNK, 4 CYCLES
     Route: 065
     Dates: start: 202011, end: 202101
  3. ALECTINIB [Suspect]
     Active Substance: ALECTINIB
     Indication: Lung adenocarcinoma stage IV
     Dosage: 600 MILLIGRAM, BID
     Route: 048
     Dates: start: 202009, end: 202011
  4. BEVACIZUMAB [Suspect]
     Active Substance: BEVACIZUMAB
     Indication: Lung adenocarcinoma stage IV
     Dosage: UNK, 4 CYCLES
     Route: 065
     Dates: start: 202011, end: 202101
  5. ATEZOLIZUMAB [Suspect]
     Active Substance: ATEZOLIZUMAB
     Indication: Lung adenocarcinoma stage IV
     Dosage: UNK, 4 CYCLES
     Route: 065
     Dates: start: 202011, end: 202101
  6. SOTORASIB [Suspect]
     Active Substance: SOTORASIB
     Indication: Lung adenocarcinoma stage IV
     Dosage: UNK
     Route: 065
     Dates: start: 202107, end: 202111
  7. BOSUTINIB [Concomitant]
     Active Substance: BOSUTINIB
     Indication: Lung adenocarcinoma stage IV
     Dosage: UNK
     Route: 065
     Dates: start: 202101, end: 202107
  8. PEMETREXED [Concomitant]
     Active Substance: PEMETREXED
     Indication: Lung adenocarcinoma stage IV
     Dosage: UNK
     Route: 065
     Dates: start: 202101, end: 202107

REACTIONS (1)
  - Drug ineffective [Unknown]
